FAERS Safety Report 6522997-6 (Version None)
Quarter: 2009Q4

REPORT INFORMATION
  Report Type: 
  Country: None (occurrence: None)
  Receive Date: 20091222
  Receipt Date: 20091214
  Transmission Date: 20100525
  Serious: Yes (Death)
  Sender: FDA-Public Use
  Company Number: 2009US004287

PATIENT
  Sex: Female

DRUGS (7)
  1. AMBISOME [Suspect]
     Indication: ENCEPHALITIC INFECTION
     Dosage: 200 MG, UID/QD, IV NOS
     Route: 042
     Dates: start: 20091120
  2. AMBISOME [Suspect]
     Indication: MENINGITIS CRYPTOCOCCAL
     Dosage: 200 MG, UID/QD, IV NOS
     Route: 042
     Dates: start: 20091120
  3. GARENOXACIN MESYLATE [Concomitant]
  4. PREDNISOLONE [Concomitant]
  5. MEIACT (CEFDITOREN PIVOXIL) [Concomitant]
  6. SOLU-MEDROL [Concomitant]
  7. ANCOTIL (FLUCYTOSINE) [Concomitant]

REACTIONS (1)
  - HYPOKALAEMIA [None]
